FAERS Safety Report 21004823 (Version 1)
Quarter: 2022Q2

REPORT INFORMATION
  Report Type: Spontaneous
  Country: US (occurrence: US)
  Receive Date: 20220624
  Receipt Date: 20220624
  Transmission Date: 20220720
  Serious: No
  Sender: FDA-Public Use
  Company Number: US-drreddys-SPO/USA/22/0151008

PATIENT
  Age: 14 Year

DRUGS (1)
  1. ACCUTANE [Suspect]
     Active Substance: ISOTRETINOIN
     Indication: Product used for unknown indication
     Dosage: RMA ISSUE DATE: 10 MARCH 2022 10:14:27 AM, 04 APRIL 2022 04:09:17 PM, 05 MAY 2022 04:20:37 PM

REACTIONS (1)
  - Upper limb fracture [Unknown]
